FAERS Safety Report 21448706 (Version 2)
Quarter: 2025Q3

REPORT INFORMATION
  Report Type: Spontaneous
  Country: EU (occurrence: EU)
  Receive Date: 20221013
  Receipt Date: 20250701
  Transmission Date: 20251020
  Serious: Yes (Other)
  Sender: AUROBINDO
  Company Number: EU-BRISTOL-MYERS SQUIBB COMPANY-BMS-2021-023449

PATIENT
  Age: 44 Year
  Sex: Female

DRUGS (4)
  1. DARUNAVIR [Suspect]
     Active Substance: DARUNAVIR
     Indication: HIV infection
     Route: 065
     Dates: start: 2013
  2. RITONAVIR [Interacting]
     Active Substance: RITONAVIR
     Indication: HIV infection
     Route: 065
     Dates: start: 2013
  3. EMTRICITABINE\TENOFOVIR [Suspect]
     Active Substance: EMTRICITABINE\TENOFOVIR
     Indication: HIV infection
     Route: 065
     Dates: start: 2013
  4. TRIAMCINOLONE ACETONIDE [Interacting]
     Active Substance: TRIAMCINOLONE ACETONIDE
     Indication: Epicondylitis
     Route: 052
     Dates: start: 201910

REACTIONS (8)
  - Kaposi^s sarcoma [Recovering/Resolving]
  - Hyperadrenocorticism [Recovered/Resolved]
  - Disease recurrence [Recovering/Resolving]
  - Drug interaction [Recovering/Resolving]
  - Secondary adrenocortical insufficiency [Recovered/Resolved]
  - Cushingoid [Recovered/Resolved]
  - Acne [Recovered/Resolved]
  - Weight increased [Recovered/Resolved]

NARRATIVE: CASE EVENT DATE: 20191201
